FAERS Safety Report 9262961 (Version 1)
Quarter: 2013Q2

REPORT INFORMATION
  Report Type: Spontaneous
  Country: US (occurrence: US)
  Receive Date: 20130430
  Receipt Date: 20130430
  Transmission Date: 20140414
  Serious: Yes (Hospitalization)
  Sender: FDA-Public Use
  Company Number: US-BAYER-2013-052024

PATIENT
  Age: 36 Year
  Sex: Female

DRUGS (6)
  1. YAZ [Suspect]
     Indication: MENORRHAGIA
  2. GIANVI [Suspect]
  3. KETOCONAZOLE [Concomitant]
     Dosage: 200 MG, UNK
  4. MULTIVITAMINS PLUS IRON [Concomitant]
  5. ENOXAPARIN [Concomitant]
  6. DILANTIN [Concomitant]

REACTIONS (4)
  - Cerebrovascular accident [None]
  - Transverse sinus thrombosis [None]
  - Superior sagittal sinus thrombosis [None]
  - Jugular vein thrombosis [None]
